FAERS Safety Report 5034856-9 (Version None)
Quarter: 2006Q2

REPORT INFORMATION
  Report Type: 
  Country: None (occurrence: None)
  Receive Date: 20060516
  Receipt Date: 20050325
  Transmission Date: 20061013
  Serious: Yes (Hospitalization)
  Sender: FDA-Public Use
  Company Number: WAES 0503USA04756

PATIENT
  Age: 47 Year
  Sex: Male

DRUGS (1)
  1. CRIXIVAN [Suspect]
     Dosage: PO
     Route: 048
     Dates: start: 20050204, end: 20050314

REACTIONS (1)
  - NEPHROLITHIASIS [None]
